FAERS Safety Report 24097884 (Version 2)
Quarter: 2024Q3

REPORT INFORMATION
  Report Type: Spontaneous
  Country: FR (occurrence: FR)
  Receive Date: 20240716
  Receipt Date: 20240801
  Transmission Date: 20241017
  Serious: Yes (Other)
  Sender: PFIZER
  Company Number: None

PATIENT
  Age: 78 Year
  Sex: Female
  Weight: 55 kg

DRUGS (5)
  1. ADCETRIS [Suspect]
     Active Substance: BRENTUXIMAB VEDOTIN
     Indication: Lymphoma
     Dosage: 108 MILLIGRAM
     Route: 042
     Dates: start: 20220901, end: 20220901
  2. DOXORUBICIN HYDROCHLORIDE [Suspect]
     Active Substance: DOXORUBICIN HYDROCHLORIDE
     Indication: Lymphoma
     Dosage: 84 MILLIGRAM
     Route: 042
     Dates: start: 20220901, end: 20220901
  3. CYCLOPHOSPHAMIDE [Suspect]
     Active Substance: CYCLOPHOSPHAMIDE
     Indication: Lymphoma
     Dosage: 1260 MILLIGRAM
     Route: 042
     Dates: start: 20220901, end: 20220901
  4. AMOXICILLIN TRIHYDRATE [Suspect]
     Active Substance: AMOXICILLIN
     Indication: Listeriosis
     Dosage: 2 GRAM, Q4HR
     Route: 042
     Dates: start: 20220910
  5. GENTAMICIN [Suspect]
     Active Substance: GENTAMICIN
     Indication: Listeriosis
     Dosage: 285 MILLIGRAM
     Route: 042
     Dates: start: 20220910, end: 20220915

REACTIONS (2)
  - Acute kidney injury [Recovered/Resolved]
  - Hypokalaemia [Recovered/Resolved]

NARRATIVE: CASE EVENT DATE: 20220911
